FAERS Safety Report 9498759 (Version 1)
Quarter: 2013Q3

REPORT INFORMATION
  Report Type: Spontaneous
  Country: US (occurrence: US)
  Receive Date: 20130904
  Receipt Date: 20130904
  Transmission Date: 20140515
  Serious: No
  Sender: FDA-Public Use
  Company Number: US-BAYER-2013-103399

PATIENT
  Age: 49 Year
  Sex: Female

DRUGS (2)
  1. MIRENA [Suspect]
     Indication: CONTRACEPTION
     Dosage: 20 MG/24HR, CONT
     Route: 015
     Dates: start: 20130807, end: 20130807
  2. MIRENA [Suspect]
     Indication: MENORRHAGIA
     Dosage: 20 MG/24HR, CONT
     Route: 015

REACTIONS (4)
  - Device misuse [None]
  - Uterine spasm [None]
  - Complication of device insertion [None]
  - Device difficult to use [None]
